FAERS Safety Report 4550251-0 (Version None)
Quarter: 2004Q4

REPORT INFORMATION
  Report Type: 
  Country: None (occurrence: None)
  Receive Date: 20041227
  Receipt Date: 20041112
  Transmission Date: 20050328
  Serious: No
  Sender: FDA-Public Use
  Company Number: 04P-163-0280424-00

PATIENT
  Age: 78 Year
  Sex: Female
  Weight: 45.3597 kg

DRUGS (8)
  1. HUMIRA [Suspect]
     Indication: RHEUMATOID ARTHRITIS
     Dosage: 40 MG, 1 IN 2 WK, SUBCUTANEOUS
     Route: 058
     Dates: start: 20041029
  2. SINEMET [Concomitant]
  3. AMANTADINE [Concomitant]
  4. RANITIDINE HYDROCHLORIDE [Concomitant]
  5. ALENDRONATE SODIUM [Concomitant]
  6. PREDNISONE [Concomitant]
  7. NAPROXEN SODIUM [Concomitant]
  8. MIRAPEX [Concomitant]

REACTIONS (1)
  - INJECTION SITE STINGING [None]
